FAERS Safety Report 17165623 (Version 1)
Quarter: 2019Q4

REPORT INFORMATION
  Report Type: Spontaneous
  Country: US (occurrence: US)
  Receive Date: 20191217
  Receipt Date: 20191217
  Transmission Date: 20200122
  Serious: Yes (Hospitalization)
  Sender: FDA-Public Use
  Company Number: US-ASTRAZENECA-2019SF80762

PATIENT
  Sex: Male
  Weight: 17 kg

DRUGS (6)
  1. SYNAGIS [Suspect]
     Active Substance: PALIVIZUMAB
     Indication: CARDIAC FAILURE
     Dosage: 15MG/ML MONTHLY
     Route: 030
     Dates: start: 20191111
  2. BUMETANIDE. [Concomitant]
     Active Substance: BUMETANIDE
     Dosage: 0.25 MG/ML
  3. OMEPRAZOLE. [Suspect]
     Active Substance: OMEPRAZOLE
     Dosage: 10 MG
     Route: 048
  4. LEVOTHYROXINE SODIUM. [Concomitant]
     Active Substance: LEVOTHYROXINE SODIUM
     Dosage: 25.0UG UNKNOWN
  5. FAMOTIDINE. [Concomitant]
     Active Substance: FAMOTIDINE
  6. CAROSPIR [Concomitant]
     Active Substance: SPIRONOLACTONE
     Dosage: 25 MG/5 ML
     Route: 048

REACTIONS (1)
  - Condition aggravated [Unknown]
